FAERS Safety Report 6409458-X (Version None)
Quarter: 2009Q4

REPORT INFORMATION
  Report Type: 
  Country: None (occurrence: None)
  Receive Date: 20091019
  Receipt Date: 20091005
  Transmission Date: 20100525
  Serious: Yes (Other)
  Sender: FDA-Public Use
  Company Number: AUR-APL-2009-00828

PATIENT
  Sex: Female

DRUGS (4)
  1. LISINOPRIL [Suspect]
  2. LEXAPRO [Suspect]
  3. DEPAKOTE [Suspect]
  4. OXYBUTYNIN CHLORIDE [Suspect]

REACTIONS (7)
  - AMNESIA [None]
  - BLOOD PRESSURE FLUCTUATION [None]
  - BLOOD PRESSURE INADEQUATELY CONTROLLED [None]
  - CONVULSION [None]
  - FALL [None]
  - HEADACHE [None]
  - TREMOR [None]
